FAERS Safety Report 7484799-6 (Version None)
Quarter: 2011Q2

REPORT INFORMATION
  Report Type: 
  Country: None (occurrence: None)
  Receive Date: 20110517
  Receipt Date: 20110512
  Transmission Date: 20111010
  Serious: Yes (Other)
  Sender: FDA-Public Use
  Company Number: A0926950A

PATIENT
  Age: 69 Year
  Sex: Female

DRUGS (6)
  1. ZOCOR [Concomitant]
  2. ALLI [Suspect]
     Indication: WEIGHT LOSS DIET
     Route: 048
     Dates: start: 20100101, end: 20110510
  3. PROTONIX [Concomitant]
     Dosage: 40MG PER DAY
  4. MOTRIN [Concomitant]
     Dosage: 600MG TWICE PER DAY
  5. COZAAR [Concomitant]
     Dosage: 25MG PER DAY
  6. THYROXINE [Concomitant]
     Dosage: .75MCG PER DAY

REACTIONS (3)
  - HEPATIC ENZYME INCREASED [None]
  - ASPARTATE AMINOTRANSFERASE INCREASED [None]
  - BLOOD ALKALINE PHOSPHATASE INCREASED [None]
